FAERS Safety Report 9626488 (Version 1)
Quarter: 2013Q4

REPORT INFORMATION
  Report Type: Spontaneous
  Country: US (occurrence: US)
  Receive Date: 20131016
  Receipt Date: 20131016
  Transmission Date: 20140711
  Serious: Yes (Other)
  Sender: FDA-Public Use
  Company Number: US-BAYER-2013-124539

PATIENT
  Sex: Female

DRUGS (6)
  1. BAYER GENUINE ASPIRIN ORIGINAL STRENGTH [Suspect]
     Indication: PRODUCT USED FOR UNKNOWN INDICATION
     Dosage: UNK
  2. COUMADIN [Interacting]
     Indication: PRODUCT USED FOR UNKNOWN INDICATION
     Dosage: UNK
  3. IBUPROFEN [Suspect]
     Indication: ARTHRITIS
     Dosage: UNK
  4. IBUPROFEN [Suspect]
     Indication: ARTHRITIS
  5. CELEBREX [Concomitant]
     Indication: ARTHRITIS
     Dosage: UNK
  6. CELEBREX [Concomitant]
     Indication: ARTHRITIS

REACTIONS (2)
  - Haematochezia [Unknown]
  - Labelled drug-drug interaction medication error [None]
